FAERS Safety Report 22540396 (Version 1)
Quarter: 2023Q2

REPORT INFORMATION
  Report Type: Spontaneous
  Country: US (occurrence: None)
  Receive Date: 20230607
  Receipt Date: 20230607
  Transmission Date: 20230722
  Serious: No
  Sender: FDA-Public Use
  Company Number: None

PATIENT
  Age: 40 Year
  Sex: Male

DRUGS (1)
  1. XELJANZ [Suspect]
     Active Substance: TOFACITINIB CITRATE
     Indication: Colitis ulcerative
     Dosage: TAKE 1 TABLET BY MOUTH TWICE DAILY  AS DIRECTED
     Route: 048
     Dates: start: 202212

REACTIONS (2)
  - Infection [None]
  - Occupational problem environmental [None]
